FAERS Safety Report 10983038 (Version 2)
Quarter: 2015Q2

REPORT INFORMATION
  Report Type: Spontaneous
  Country: US (occurrence: US)
  Receive Date: 20150403
  Receipt Date: 20150416
  Transmission Date: 20150821
  Serious: Yes (Hospitalization)
  Sender: FDA-Public Use
  Company Number: US-AMGEN-USASP2015030252

PATIENT
  Age: 66 Year
  Sex: Female

DRUGS (18)
  1. CALCIUM [Concomitant]
     Active Substance: CALCIUM
  2. VITAMIN B1                         /00056101/ [Concomitant]
     Dosage: 100 MG, QD
     Route: 048
  3. XANAX [Concomitant]
     Active Substance: ALPRAZOLAM
     Indication: ANXIETY
     Dosage: 1 MG, AT NIGHT AS NECESSARY
     Route: 048
     Dates: start: 20120501
  4. MULTIVITAMIN WITH MINERALS [Concomitant]
     Active Substance: MINERALS\VITAMINS
     Dosage: 1 DF, QD
     Route: 048
  5. SAMSCA [Concomitant]
     Active Substance: TOLVAPTAN
     Dosage: 30 MG, QD
     Route: 048
  6. PRINIVIL [Concomitant]
     Active Substance: LISINOPRIL
     Indication: HYPERTENSION
     Dosage: 40 MG, QD
     Route: 048
     Dates: start: 20110603
  7. COREG [Concomitant]
     Active Substance: CARVEDILOL
     Dosage: 6.25 MG, Q12H
     Route: 048
  8. CALCIUM VITAMIN D [Concomitant]
     Active Substance: CALCIUM\VITAMIN D
  9. CARDURA [Concomitant]
     Active Substance: DOXAZOSIN MESYLATE
     Dosage: 1 MG, QD
     Route: 048
  10. LOPRESSOR [Concomitant]
     Active Substance: METOPROLOL TARTRATE
     Dosage: 50 MG, BID
     Route: 048
     Dates: start: 20110603
  11. VITAMIN D                          /00107901/ [Concomitant]
     Active Substance: ERGOCALCIFEROL
  12. BAYER ASPIRIN [Concomitant]
     Active Substance: ASPIRIN
     Dosage: 325 MG, UNK
     Route: 048
  13. PROLIA [Suspect]
     Active Substance: DENOSUMAB
     Indication: PRODUCT USED FOR UNKNOWN INDICATION
     Dosage: UNK
     Route: 065
     Dates: start: 2013
  14. FOLBEE [Concomitant]
     Dosage: 1 DF, QD
     Route: 048
  15. FOLTX [Concomitant]
     Active Substance: CYANOCOBALAMIN CO-57\FOLIC ACID\PYRIDOXINE HYDROCHLORIDE
     Dosage: 1 DF, QD
     Route: 048
  16. NORCO [Concomitant]
     Active Substance: ACETAMINOPHEN\HYDROCODONE BITARTRATE
     Indication: SPINAL OSTEOARTHRITIS
     Dosage: 10 - 325 MG, Q6H AS NEEDED
     Route: 048
     Dates: start: 20101105
  17. XANAX [Concomitant]
     Active Substance: ALPRAZOLAM
     Indication: INSOMNIA
  18. ATIVAN [Concomitant]
     Active Substance: LORAZEPAM
     Indication: ANXIETY
     Dosage: 0.5 MG, QD
     Route: 048
     Dates: start: 20101105

REACTIONS (20)
  - Malaise [Unknown]
  - Dizziness [Unknown]
  - Abdominal mass [Unknown]
  - Urine osmolarity increased [Unknown]
  - Chest pain [Unknown]
  - Spinal deformity [Unknown]
  - Aspartate aminotransferase decreased [Unknown]
  - Hyponatraemia [Unknown]
  - Tooth disorder [Unknown]
  - Abdominal pain [Unknown]
  - Electrolyte imbalance [Unknown]
  - Pain in jaw [Unknown]
  - Oedema peripheral [Unknown]
  - Asthenia [Unknown]
  - Thyroid neoplasm [Unknown]
  - Abdominal distension [Unknown]
  - Hypochloraemia [Unknown]
  - Pelvic mass [Unknown]
  - General physical health deterioration [Unknown]
  - Constipation [Unknown]

NARRATIVE: CASE EVENT DATE: 2013
